FAERS Safety Report 5606186-5 (Version None)
Quarter: 2008Q1

REPORT INFORMATION
  Report Type: 
  Country: None (occurrence: None)
  Receive Date: 20080129
  Receipt Date: 20070117
  Transmission Date: 20080703
  Serious: No
  Sender: FDA-Public Use
  Company Number: A0635909A

PATIENT

DRUGS (1)
  1. BUPROPION HCL [Suspect]

REACTIONS (1)
  - DRUG EFFECT DECREASED [None]
